FAERS Safety Report 23908733 (Version 1)
Quarter: 2024Q2

REPORT INFORMATION
  Report Type: Spontaneous
  Country: US (occurrence: US)
  Receive Date: 20240528
  Receipt Date: 20240528
  Transmission Date: 20240716
  Serious: No
  Sender: FDA-Public Use
  Company Number: US-PERRIGO-23US006547

PATIENT
  Age: 62 Year
  Sex: Male
  Weight: 65.76 kg

DRUGS (23)
  1. MINOXIDIL [Suspect]
     Active Substance: MINOXIDIL
     Indication: Androgenetic alopecia
     Dosage: APPROX. 0.5 CAPFUL, QD OR BID
     Route: 061
     Dates: start: 202111, end: 20230530
  2. CREATINE [Suspect]
     Active Substance: CREATINE
     Indication: Performance enhancing product use
     Dosage: 5 MG, QD
     Route: 065
     Dates: start: 2023, end: 20230530
  3. FINASTERIDE [Concomitant]
     Active Substance: FINASTERIDE
     Indication: Androgenetic alopecia
     Dosage: UNK
     Route: 065
     Dates: start: 1993
  4. CYTOMEL [Concomitant]
     Active Substance: LIOTHYRONINE SODIUM
     Indication: Hypothyroidism
     Dosage: UNK
     Route: 065
     Dates: start: 2022
  5. CARNITINE [Concomitant]
     Active Substance: CARNITINE
     Indication: Metabolic disorder
     Dosage: UNK
     Route: 065
  6. ALPHA LIPOIC ACID [Concomitant]
     Active Substance: .ALPHA.-LIPOIC ACID
     Indication: Antioxidant therapy
     Dosage: UNK
     Route: 065
  7. VITAMIN B COMPLEX [Concomitant]
     Active Substance: CYANOCOBALAMIN\DEXPANTHENOL\NIACINAMIDE\PYRIDOXINE HYDROCHLORIDE\RIBOFLAVIN 5^-PHOSPHATE SODIUM\THIA
     Indication: Supplementation therapy
     Dosage: UNK
     Route: 065
  8. COENZYME Q10 [Concomitant]
     Active Substance: DIETARY SUPPLEMENT\UBIDECARENONE
     Indication: Antioxidant therapy
     Dosage: UNK
     Route: 065
  9. DIGESTIVE ENZYMES V COMPLEX [Concomitant]
     Indication: Prophylaxis
     Dosage: UNK
     Route: 065
  10. FISH OIL [Concomitant]
     Active Substance: FISH OIL
     Indication: Supplementation therapy
     Dosage: UNK
     Route: 065
  11. VITAMINS NOS [Concomitant]
     Active Substance: VITAMINS
     Indication: Supplementation therapy
     Dosage: UNK
     Route: 065
  12. MAGNESIUM [Concomitant]
     Active Substance: MAGNESIUM
     Indication: Supplementation therapy
     Dosage: UNK
     Route: 065
  13. VITAMINS NOS [Concomitant]
     Active Substance: VITAMINS
     Indication: Supplementation therapy
     Dosage: UNK
     Route: 065
  14. N-ACETYL CARNITINE [Concomitant]
     Indication: Detoxification
     Dosage: UNKNOWN, PRN
     Route: 065
  15. HERBALS [Concomitant]
     Active Substance: HERBALS
     Indication: Hypothyroidism
     Dosage: UNK
     Route: 065
  16. ASCORBIC ACID [Concomitant]
     Active Substance: ASCORBIC ACID
     Indication: Antioxidant therapy
     Dosage: UNK
     Route: 065
  17. VITAMIN D NOS [Concomitant]
     Active Substance: CHOLECALCIFEROL\ERGOCALCIFEROL
     Indication: Supplementation therapy
     Dosage: UNK
     Route: 065
  18. NIACIN [Concomitant]
     Active Substance: NIACIN
     Indication: Supplementation therapy
     Dosage: UNK
     Route: 065
  19. GLUTATHIONE [Concomitant]
     Active Substance: GLUTATHIONE
     Indication: Detoxification
     Dosage: UNKNOWN, PRN
     Route: 065
  20. CHARCOAL [Concomitant]
     Active Substance: ACTIVATED CHARCOAL
     Indication: Detoxification
     Dosage: UNKNOWN, PRN
     Route: 065
  21. COPPER [Concomitant]
     Active Substance: COPPER
     Indication: Blood copper decreased
     Dosage: UNK
     Route: 065
  22. .GAMMA.-AMINOBUTYRIC ACID [Concomitant]
     Active Substance: .GAMMA.-AMINOBUTYRIC ACID
     Indication: Relaxation therapy
     Dosage: UNK
     Route: 065
  23. .GAMMA.-AMINOBUTYRIC ACID [Concomitant]
     Active Substance: .GAMMA.-AMINOBUTYRIC ACID
     Indication: Insomnia

REACTIONS (11)
  - Application site dryness [Not Recovered/Not Resolved]
  - Alopecia [Not Recovered/Not Resolved]
  - Application site exfoliation [Not Recovered/Not Resolved]
  - Application site inflammation [Not Recovered/Not Resolved]
  - Application site haemorrhage [Not Recovered/Not Resolved]
  - Skin texture abnormal [Not Recovered/Not Resolved]
  - Application site erythema [Recovering/Resolving]
  - Application site pruritus [Recovering/Resolving]
  - Application site irritation [Recovered/Resolved]
  - Product administered at inappropriate site [Unknown]
  - Inappropriate schedule of product administration [Unknown]

NARRATIVE: CASE EVENT DATE: 20211101
